FAERS Safety Report 8103083-0 (Version None)
Quarter: 2012Q1

REPORT INFORMATION
  Report Type: 
  Country: None (occurrence: None)
  Receive Date: 20120127
  Receipt Date: 20120125
  Transmission Date: 20120608
  Serious: Yes (Hospitalization)
  Sender: FDA-Public Use
  Company Number: SP05491

PATIENT
  Age: 65 Year
  Sex: Female

DRUGS (4)
  1. CALCIUM CARBONATE [Concomitant]
  2. ACETYLSALICYLIC ACID SRT [Concomitant]
  3. OSMOPREP [Suspect]
     Indication: BOWEL PREPARATION
     Dosage: (20 TABLETS), ORAL
     Route: 048
     Dates: start: 20111219, end: 20111219
  4. CANDESARTAN CILEXETIL AND HYDROCHLOROTHIAZIDE [Concomitant]

REACTIONS (4)
  - BLOOD POTASSIUM DECREASED [None]
  - MALAISE [None]
  - LOSS OF CONSCIOUSNESS [None]
  - TONIC CONVULSION [None]
